FAERS Safety Report 7199849-4 (Version None)
Quarter: 2010Q4

REPORT INFORMATION
  Report Type: 
  Country: None (occurrence: None)
  Receive Date: 20101228
  Receipt Date: 20101208
  Transmission Date: 20110411
  Serious: No
  Sender: FDA-Public Use
  Company Number: US-B.I. PHARMACEUTICALS,INC./RIDGEFIELD-2010-BP-14149BP

PATIENT
  Age: 78 Year
  Sex: Male

DRUGS (2)
  1. PRADAXA [Suspect]
     Indication: CEREBROVASCULAR ACCIDENT PROPHYLAXIS
     Dosage: 300 MG
     Route: 048
     Dates: start: 20101201
  2. PRADAXA [Suspect]
     Indication: ATRIAL FIBRILLATION

REACTIONS (3)
  - ABDOMINAL PAIN UPPER [None]
  - BODY TEMPERATURE INCREASED [None]
  - CHILLS [None]
